FAERS Safety Report 7302341-7 (Version None)
Quarter: 2011Q1

REPORT INFORMATION
  Report Type: 
  Country: None (occurrence: None)
  Receive Date: 20110218
  Receipt Date: 20110211
  Transmission Date: 20110831
  Serious: Yes (Life-Threatening, Hospitalization)
  Sender: FDA-Public Use
  Company Number: ES-CEPHALON-2011000788

PATIENT
  Sex: Male

DRUGS (5)
  1. RITUXIMAB [Suspect]
     Indication: B-CELL LYMPHOMA
     Route: 042
     Dates: start: 20100827, end: 20101104
  2. BENDAMUSTINE HCL [Suspect]
     Indication: B-CELL LYMPHOMA
     Route: 042
     Dates: start: 20100827, end: 20101104
  3. OMEPRAZOLE [Concomitant]
  4. PRIMPERAN TAB [Concomitant]
  5. PROZAC [Concomitant]

REACTIONS (1)
  - GUILLAIN-BARRE SYNDROME [None]
